FAERS Safety Report 10010091 (Version 1)
Quarter: 2014Q1

REPORT INFORMATION
  Report Type: Spontaneous
  Country: US (occurrence: US)
  Receive Date: 20140312
  Receipt Date: 20140312
  Transmission Date: 20141002
  Serious: No
  Sender: FDA-Public Use
  Company Number: US-INCYTE CORPORATION-2013IN001325

PATIENT
  Age: 60 Year
  Sex: Male

DRUGS (9)
  1. JAKAFI [Suspect]
     Indication: MYELOFIBROSIS
     Dosage: 10 MG, BID
     Route: 048
     Dates: start: 201202
  2. ASPIRIN [Concomitant]
     Dosage: 81 MG, UNK
  3. METOPROLOL [Concomitant]
  4. LIPITOR [Concomitant]
  5. PANTOPRAZOLE [Concomitant]
  6. ALLOPURINOL [Concomitant]
  7. TENOFOVIR [Concomitant]
  8. METFORMIN [Concomitant]
  9. GLICLAZIDE [Concomitant]

REACTIONS (1)
  - Splenomegaly [Unknown]
